FAERS Safety Report 8215487-6 (Version None)
Quarter: 2012Q1

REPORT INFORMATION
  Report Type: 
  Country: None (occurrence: None)
  Receive Date: 20120316
  Receipt Date: 20120308
  Transmission Date: 20120608
  Serious: Yes (Hospitalization, Other)
  Sender: FDA-Public Use
  Company Number: US-JNJFOC-20120305053

PATIENT
  Sex: Male
  Weight: 88.45 kg

DRUGS (8)
  1. FENTANYL CITRATE [Concomitant]
     Indication: BACK PAIN
     Route: 062
  2. BENICAR [Suspect]
     Indication: BLOOD PRESSURE
     Route: 065
     Dates: start: 20040101, end: 20070101
  3. PERCOCET [Concomitant]
     Indication: BREAKTHROUGH PAIN
     Route: 048
     Dates: start: 20080101
  4. TRICOR [Concomitant]
     Indication: BLOOD CHOLESTEROL
     Route: 048
     Dates: start: 20050101
  5. METFORMIN HYDROCHLORIDE [Concomitant]
     Indication: TYPE 2 DIABETES MELLITUS
     Route: 048
     Dates: start: 20040101
  6. FENTANYL [Suspect]
     Indication: PAIN
     Route: 062
     Dates: start: 20050101
  7. FENTANYL [Suspect]
     Route: 062
     Dates: start: 20050101
  8. REMICAIDE [Concomitant]
     Indication: CROHN'S DISEASE
     Route: 042
     Dates: start: 20110101, end: 20111201

REACTIONS (8)
  - MALNUTRITION [None]
  - HYPOTENSION [None]
  - DECREASED APPETITE [None]
  - LUNG NEOPLASM MALIGNANT [None]
  - ABNORMAL LOSS OF WEIGHT [None]
  - DEPRESSION [None]
  - INTESTINAL OBSTRUCTION [None]
  - PRODUCT QUALITY ISSUE [None]
